FAERS Safety Report 11131510 (Version 1)
Quarter: 2015Q2

REPORT INFORMATION
  Report Type: Spontaneous
  Country: ES (occurrence: None)
  Receive Date: 20150520
  Receipt Date: 20150520
  Transmission Date: 20150821
  Serious: Yes (Hospitalization)
  Sender: FDA-Public Use
  Company Number: UCM201505-000354

PATIENT
  Age: 2 Month
  Sex: Male

DRUGS (1)
  1. HYDROCHLOROTHIAZIDE. [Suspect]
     Active Substance: HYDROCHLOROTHIAZIDE
     Indication: NEPHROGENIC DIABETES INSIPIDUS
     Route: 048

REACTIONS (11)
  - Hyperhidrosis [None]
  - Lethargy [None]
  - Polyuria [None]
  - Off label use [None]
  - Hypothermia [None]
  - Dyspnoea [None]
  - Hypernatraemia [None]
  - Water intoxication [None]
  - Asthenia [None]
  - Pallor [None]
  - Polydipsia [None]
